FAERS Safety Report 8888660 (Version 1)
Quarter: 2012Q4

REPORT INFORMATION
  Report Type: Report from Study
  Country: IN (occurrence: IN)
  Receive Date: 20121106
  Receipt Date: 20121106
  Transmission Date: 20130627
  Serious: Yes (Other)
  Sender: FDA-Public Use
  Company Number: IN-GLAXOSMITHKLINE-A0920784A

PATIENT
  Age: 53 Year
  Sex: Male
  Weight: 54 kg

DRUGS (3)
  1. LAPATINIB [Suspect]
     Indication: HEAD AND NECK CANCER
     Dosage: 1500MG Per day
     Route: 048
     Dates: start: 20090904
  2. CISPLATIN [Suspect]
     Indication: HEAD AND NECK CANCER
     Route: 042
     Dates: start: 20090912
  3. RADIOTHERAPY [Concomitant]
     Indication: HEAD AND NECK CANCER
     Route: 061
     Dates: start: 20090912

REACTIONS (1)
  - Lymphopenia [Recovered/Resolved]
